FAERS Safety Report 8849281 (Version 1)
Quarter: 2012Q4

REPORT INFORMATION
  Report Type: Spontaneous
  Country: US (occurrence: None)
  Receive Date: 20121018
  Receipt Date: 20121018
  Transmission Date: 20130627
  Serious: Yes (Disabling)
  Sender: FDA-Public Use
  Company Number: None

PATIENT
  Sex: Female
  Weight: 104.33 kg

DRUGS (2)
  1. BUDEPRION XL [Suspect]
     Dosage: budeprion XL 300mg 1 tab P.O. q AM
     Route: 048
     Dates: start: 20111118, end: 20121004
  2. BUDEPRION XL [Suspect]
     Dosage: budeprion XL 300mg 1 tab P.O. q AM
     Route: 048
     Dates: start: 20111118, end: 20121004

REACTIONS (3)
  - Drug ineffective [None]
  - Product substitution issue [None]
  - Depression [None]
